FAERS Safety Report 7211386-7 (Version None)
Quarter: 2011Q1

REPORT INFORMATION
  Report Type: 
  Country: None (occurrence: None)
  Receive Date: 20110105
  Receipt Date: 20110105
  Transmission Date: 20110831
  Serious: Yes (Death, Hospitalization)
  Sender: FDA-Public Use
  Company Number: GB-AMGEN-GBRCT2010011127

PATIENT

DRUGS (7)
  1. CAPECITABINE [Suspect]
     Dosage: UNK
     Dates: start: 20101018, end: 20101208
  2. PANITUMUMAB [Suspect]
     Dosage: UNK
     Dates: start: 20101018, end: 20101208
  3. RAMIPRIL [Concomitant]
     Indication: HYPERTENSION
     Dosage: 5 MG, UNK
     Dates: start: 20101012
  4. EPIRUBICIN [Suspect]
     Dosage: UNK
     Dates: start: 20101018, end: 20101208
  5. OXALIPLATIN [Suspect]
     Dosage: UNK
     Dates: start: 20101018, end: 20101208
  6. OMEPRAZOLE [Concomitant]
     Dosage: 20 MG, UNK
     Dates: start: 20101012
  7. GAVISCON                           /00237601/ [Concomitant]
     Dosage: 5 ML, UNK
     Dates: start: 20101012

REACTIONS (5)
  - NAUSEA [None]
  - DIARRHOEA [None]
  - DEHYDRATION [None]
  - VOMITING [None]
  - INTESTINAL PERFORATION [None]
